FAERS Safety Report 9774316 (Version 3)
Quarter: 2014Q1

REPORT INFORMATION
  Report Type: Spontaneous
  Country: CA (occurrence: CA)
  Receive Date: 20131220
  Receipt Date: 20140212
  Transmission Date: 20141002
  Serious: Yes (Other)
  Sender: FDA-Public Use
  Company Number: CA-ROCHE-1322658

PATIENT
  Age: 36 Year
  Sex: Female

DRUGS (23)
  1. XOLAIR [Suspect]
     Indication: ASTHMA
     Route: 030
     Dates: start: 2008
  2. XOLAIR [Suspect]
     Route: 058
     Dates: start: 20081212
  3. XOLAIR [Suspect]
     Route: 058
     Dates: start: 20090423
  4. XOLAIR [Suspect]
     Route: 030
     Dates: start: 201112
  5. XOLAIR [Suspect]
     Route: 058
     Dates: start: 20120731
  6. XOLAIR [Suspect]
     Route: 058
     Dates: start: 20120814
  7. XOLAIR [Suspect]
     Route: 058
     Dates: start: 20130131
  8. XOLAIR [Suspect]
     Route: 058
     Dates: start: 20130919
  9. XOLAIR [Suspect]
     Route: 058
     Dates: start: 20131003
  10. XOLAIR [Suspect]
     Route: 058
     Dates: start: 20131031
  11. XOLAIR [Suspect]
     Route: 058
     Dates: start: 20140206
  12. SINGULAIR [Concomitant]
  13. ALVESCO [Concomitant]
  14. SYMBICORT [Concomitant]
     Route: 065
  15. SYMBICORT [Concomitant]
     Route: 065
  16. ADVAIR [Concomitant]
  17. PREDNISONE [Concomitant]
     Route: 065
  18. PREDNISONE [Concomitant]
     Route: 065
  19. PREDNISONE [Concomitant]
     Route: 065
  20. ZENHALE [Concomitant]
  21. MONTELUKAST [Concomitant]
  22. SYNTHROID [Concomitant]
  23. LANSOPRAZOLE [Concomitant]

REACTIONS (11)
  - Fall [Unknown]
  - Concussion [Recovering/Resolving]
  - Syncope [Recovering/Resolving]
  - Contusion [Not Recovered/Not Resolved]
  - Palpitations [Unknown]
  - Feeling abnormal [Unknown]
  - Body temperature decreased [Not Recovered/Not Resolved]
  - Contusion [Not Recovered/Not Resolved]
  - Fatigue [Recovering/Resolving]
  - Dizziness [Unknown]
  - Incorrect route of drug administration [Unknown]
